FAERS Safety Report 25174397 (Version 1)
Quarter: 2025Q2

REPORT INFORMATION
  Report Type: Spontaneous
  Country: JP (occurrence: JP)
  Receive Date: 20250408
  Receipt Date: 20250408
  Transmission Date: 20250717
  Serious: Yes (Other)
  Sender: JOHNSON AND JOHNSON
  Company Number: JP-JNJFOC-20250408531

PATIENT

DRUGS (1)
  1. REMICADE [Suspect]
     Active Substance: INFLIXIMAB
     Indication: Product used for unknown indication
     Route: 041

REACTIONS (6)
  - Colon cancer [Unknown]
  - Anal cancer [Unknown]
  - Small intestine carcinoma [Unknown]
  - Lung neoplasm malignant [Unknown]
  - Uterine cancer [Unknown]
  - Adrenal gland cancer [Unknown]
